FAERS Safety Report 13722513 (Version 1)
Quarter: 2017Q3

REPORT INFORMATION
  Report Type: Spontaneous
  Country: US (occurrence: US)
  Receive Date: 20170706
  Receipt Date: 20170706
  Transmission Date: 20171127
  Serious: No
  Sender: FDA-Public Use
  Company Number: US-JNJFOC-20170103862

PATIENT
  Age: 62 Year
  Sex: Male

DRUGS (1)
  1. REMICADE [Suspect]
     Active Substance: INFLIXIMAB
     Indication: PRODUCT USED FOR UNKNOWN INDICATION
     Route: 042
     Dates: start: 20161222, end: 20161222

REACTIONS (5)
  - Dyspnoea [Unknown]
  - Infusion related reaction [Unknown]
  - Chest pain [Unknown]
  - Erythema [Unknown]
  - Back pain [Unknown]

NARRATIVE: CASE EVENT DATE: 20161222
